FAERS Safety Report 7114910-8 (Version None)
Quarter: 2010Q4

REPORT INFORMATION
  Report Type: 
  Country: None (occurrence: None)
  Receive Date: 20101122
  Receipt Date: 20101110
  Transmission Date: 20110411
  Serious: No
  Sender: FDA-Public Use
  Company Number: US-BIOGENIDEC-2010BI040180

PATIENT
  Sex: Female

DRUGS (1)
  1. TYSABRI [Suspect]
     Indication: MULTIPLE SCLEROSIS
     Route: 042

REACTIONS (11)
  - DRUG INEFFECTIVE [None]
  - EAR DISCOMFORT [None]
  - FEELING ABNORMAL [None]
  - HEADACHE [None]
  - HYPOAESTHESIA [None]
  - MENOPAUSE [None]
  - MIGRAINE [None]
  - MULTIPLE SCLEROSIS [None]
  - PAIN [None]
  - SENSORY DISTURBANCE [None]
  - VISUAL IMPAIRMENT [None]
